FAERS Safety Report 4948171-2 (Version None)
Quarter: 2006Q1

REPORT INFORMATION
  Report Type: 
  Country: None (occurrence: None)
  Receive Date: 20060320
  Receipt Date: 20060309
  Transmission Date: 20060701
  Serious: Yes (Hospitalization)
  Sender: FDA-Public Use
  Company Number: PHHO2006JP04230

PATIENT
  Age: 77 Year
  Sex: Male
  Weight: 62 kg

DRUGS (10)
  1. ASPIRIN [Concomitant]
     Indication: CEREBELLAR INFARCTION
     Dates: end: 20040205
  2. BASEN [Concomitant]
     Indication: DIABETES MELLITUS
  3. AMARYL [Concomitant]
     Dates: start: 20030510, end: 20050525
  4. LIPITOR [Concomitant]
     Indication: HYPERCHOLESTEROLAEMIA
  5. INNOLET N [Concomitant]
     Indication: DIABETES MELLITUS
  6. BIO THREE [Concomitant]
  7. DIOVAN [Suspect]
     Indication: HYPERTENSION
     Dosage: 40 MG, QD
     Route: 048
     Dates: start: 20021211, end: 20040122
  8. DIOVAN [Suspect]
     Dosage: OFF MEDICATION
     Dates: start: 20040123, end: 20040509
  9. DIOVAN [Suspect]
     Dosage: 40 MG, QD
     Route: 048
     Dates: start: 20040510, end: 20041206
  10. DIOVAN [Suspect]
     Dosage: 80 MG, QD
     Route: 048
     Dates: start: 20041206

REACTIONS (4)
  - ABDOMINAL PAIN UPPER [None]
  - DYSPEPSIA [None]
  - HYPERGLYCAEMIA [None]
  - REFLUX OESOPHAGITIS [None]
